FAERS Safety Report 9424778 (Version 1)
Quarter: 2013Q3

REPORT INFORMATION
  Report Type: Spontaneous
  Country: US (occurrence: US)
  Receive Date: 20130729
  Receipt Date: 20130729
  Transmission Date: 20140515
  Serious: Yes (Other)
  Sender: FDA-Public Use
  Company Number: US-PFIZER INC-2013219570

PATIENT
  Age: 61 Year
  Sex: Male
  Weight: 81.63 kg

DRUGS (6)
  1. LYRICA [Suspect]
     Indication: NEURALGIA
     Dosage: UNK
     Dates: start: 201306, end: 2013
  2. LYRICA [Suspect]
     Indication: FIBROMYALGIA
  3. TRAZODONE HCL [Suspect]
     Indication: DEPRESSION
     Dosage: UNK
  4. LORAZEPAM [Suspect]
     Indication: ANXIETY
     Dosage: UNK
  5. MORPHINE [Concomitant]
     Indication: PAIN
     Dosage: UNK
  6. HYDROCHLOROTHIAZIDE [Concomitant]
     Indication: HYPERTENSION
     Dosage: UNK

REACTIONS (9)
  - Diabetes mellitus [Unknown]
  - Urinary tract infection [Unknown]
  - Urinary retention [Unknown]
  - Dysuria [Unknown]
  - Renal disorder [Unknown]
  - Bladder disorder [Unknown]
  - Gastrointestinal disorder [Unknown]
  - Malaise [Unknown]
  - Inappropriate schedule of drug administration [Unknown]
